FAERS Safety Report 4679969-6 (Version None)
Quarter: 2005Q2

REPORT INFORMATION
  Report Type: 
  Country: None (occurrence: None)
  Receive Date: 20050531
  Receipt Date: 20050517
  Transmission Date: 20051028
  Serious: Yes (Other)
  Sender: FDA-Public Use
  Company Number: 2005076969

PATIENT
  Age: 32 Year
  Sex: Female
  Weight: 250 kg

DRUGS (3)
  1. DEPO-PROVERA [Suspect]
     Indication: CONTRACEPTION
     Dosage: SEE IMAGE
     Route: 030
     Dates: start: 20040728, end: 20040728
  2. DEPO-PROVERA [Suspect]
     Indication: CONTRACEPTION
     Dosage: SEE IMAGE
     Route: 030
     Dates: start: 20050205, end: 20050205
  3. ORAL CONTRACETIVE NOS (ORAL CONTRACEPTIVE NOS) [Suspect]
     Indication: CONTRACEPTION
     Dosage: ORAL
     Route: 048
     Dates: start: 19890101

REACTIONS (2)
  - AMENORRHOEA [None]
  - HEPATIC ADENOMA [None]
